FAERS Safety Report 7358846-6 (Version None)
Quarter: 2011Q1

REPORT INFORMATION
  Report Type: 
  Country: None (occurrence: None)
  Receive Date: 20110317
  Receipt Date: 20110307
  Transmission Date: 20110831
  Serious: Yes (Death)
  Sender: FDA-Public Use
  Company Number: B0700775A

PATIENT
  Age: 66 Year
  Sex: Female

DRUGS (3)
  1. REVOLADE [Suspect]
     Indication: IDIOPATHIC THROMBOCYTOPENIC PURPURA
     Dosage: 12.5MG PER DAY
     Route: 048
     Dates: start: 20110104, end: 20110124
  2. DEXAMETHASONE [Concomitant]
     Indication: IDIOPATHIC THROMBOCYTOPENIC PURPURA
  3. REVOLADE [Suspect]
     Dosage: 12.5MG PER DAY
     Route: 048
     Dates: start: 20110128, end: 20110215

REACTIONS (4)
  - DISSEMINATED INTRAVASCULAR COAGULATION [None]
  - THROMBOSIS [None]
  - MULTI-ORGAN FAILURE [None]
  - SHOCK [None]
